FAERS Safety Report 4869240-1 (Version None)
Quarter: 2005Q4

REPORT INFORMATION
  Report Type: 
  Country: None (occurrence: None)
  Receive Date: 20051230
  Receipt Date: 20051221
  Transmission Date: 20060501
  Serious: Yes (Hospitalization)
  Sender: FDA-Public Use
  Company Number: PHHO2005US19970

PATIENT
  Age: 21 Year
  Sex: Female

DRUGS (1)
  1. ICL670 [Suspect]
     Indication: HAEMOSIDEROSIS
     Dosage: 1500 MG DAILY
     Route: 048

REACTIONS (3)
  - ABORTION SPONTANEOUS [None]
  - DRUG EXPOSURE DURING PREGNANCY [None]
  - PREGNANCY [None]
